FAERS Safety Report 8948200 (Version 1)
Quarter: 2012Q4

REPORT INFORMATION
  Report Type: 
  Country: US (occurrence: US)
  Receive Date: 20121204
  Receipt Date: 20121204
  Transmission Date: 20130627
  Serious: Yes (Other)
  Sender: FDA-Public Use
  Company Number: US-BAYER-2012-126581

PATIENT
  Age: 71 Year
  Sex: Male
  Weight: 136 kg

DRUGS (9)
  1. ALEVE CAPLET/TABLET,MIDOL EXTENDED RELIEF CAPLET [Suspect]
     Indication: MUSCLE PAIN
     Dosage: 2 DF, PRN
     Route: 048
     Dates: start: 201211
  2. IBUPROFEN [Concomitant]
  3. BAYER ASPIRIN REGIMEN ADULT LOW STRENGTH [Concomitant]
     Dosage: 1 DF, QD
     Route: 048
  4. CODEINE [Concomitant]
  5. POTASSIUM [Concomitant]
  6. FUROSEMIDE [Concomitant]
  7. LEVOTHYROXINE [Concomitant]
  8. BYSTOLIC [Concomitant]
  9. H FORGE [Concomitant]

REACTIONS (2)
  - Kidney infection [Not Recovered/Not Resolved]
  - Pain [Not Recovered/Not Resolved]
